FAERS Safety Report 7380061-0 (Version None)
Quarter: 2011Q1

REPORT INFORMATION
  Report Type: 
  Country: None (occurrence: None)
  Receive Date: 20110329
  Receipt Date: 20110323
  Transmission Date: 20110831
  Serious: Yes (Death)
  Sender: FDA-Public Use
  Company Number: TW-JNJFOC-20110310539

PATIENT

DRUGS (2)
  1. ULTRACET [Suspect]
     Indication: PAIN
     Route: 048
  2. MORPHINE [Concomitant]
     Indication: ANALGESIC THERAPY
     Route: 065

REACTIONS (2)
  - VOMITING [None]
  - GALLBLADDER PERFORATION [None]
